FAERS Safety Report 9679018 (Version 1)
Quarter: 2013Q4

REPORT INFORMATION
  Report Type: Spontaneous
  Country: US (occurrence: US)
  Receive Date: 20131108
  Receipt Date: 20131108
  Transmission Date: 20140711
  Serious: Yes (Hospitalization)
  Sender: FDA-Public Use
  Company Number: US-ROXANE LABORATORIES, INC.-2013-RO-01792RO

PATIENT
  Age: 8 Year
  Sex: Male
  Weight: 27 kg

DRUGS (1)
  1. LITHIUM CARBONATE [Suspect]
     Indication: OPPOSITIONAL DEFIANT DISORDER
     Dosage: 1500 MG

REACTIONS (4)
  - Renal failure acute [Recovered/Resolved]
  - Nephrogenic diabetes insipidus [Unknown]
  - Dehydration [Recovered/Resolved]
  - Toxicity to various agents [Recovered/Resolved]
